FAERS Safety Report 5319786-7 (Version None)
Quarter: 2007Q1

REPORT INFORMATION
  Report Type: 
  Country: None (occurrence: None)
  Receive Date: 20070201
  Receipt Date: 20061108
  Transmission Date: 20070707
  Serious: Yes (Other)
  Sender: FDA-Public Use
  Company Number: 2006140682

PATIENT
  Age: 51 Year
  Sex: Female
  Weight: 49.8957 kg

DRUGS (3)
  1. AROMASIN [Suspect]
     Indication: BREAST CANCER
     Dosage: (25 MG)
     Dates: start: 20060201
  2. LEXAPRO [Concomitant]
  3. NEXIUM [Concomitant]

REACTIONS (1)
  - ARTHRALGIA [None]
